FAERS Safety Report 18250287 (Version 3)
Quarter: 2020Q4

REPORT INFORMATION
  Report Type: Spontaneous
  Country: US (occurrence: US)
  Receive Date: 20200909
  Receipt Date: 20201007
  Transmission Date: 20210113
  Serious: No
  Sender: FDA-Public Use
  Company Number: US-TEVA-2020-US-1826120

PATIENT
  Age: 32 Year
  Sex: Male

DRUGS (10)
  1. ALLOPURINOL. [Concomitant]
     Active Substance: ALLOPURINOL
  2. HYDROXYUREA. [Concomitant]
     Active Substance: HYDROXYUREA
  3. VITAMIN A [Concomitant]
     Active Substance: VITAMIN A
  4. AMLODIPINE [Concomitant]
     Active Substance: AMLODIPINE BESYLATE
  5. FOLIC ACID. [Concomitant]
     Active Substance: FOLIC ACID
  6. SYNRIBO [Suspect]
     Active Substance: OMACETAXINE MEPESUCCINATE
     Indication: CHRONIC MYELOID LEUKAEMIA
     Dosage: DOSE: 2.7 MG/0.77 ML, FREQUENCY: BID FOR 14 DAYS OF 28 CYCLE
     Route: 065
     Dates: start: 20200805
  7. CYANOCOBALAMIN. [Concomitant]
     Active Substance: CYANOCOBALAMIN
  8. MULTIVITAMIN [Concomitant]
     Active Substance: VITAMINS
  9. LCLUSIG [Concomitant]
     Active Substance: PONATINIB
  10. VITAMIN C [Concomitant]
     Active Substance: ASCORBIC ACID
     Dosage: CHEWABLE

REACTIONS (2)
  - Condition aggravated [Unknown]
  - Peripheral swelling [Unknown]

NARRATIVE: CASE EVENT DATE: 2020
